FAERS Safety Report 25285500 (Version 1)
Quarter: 2025Q2

REPORT INFORMATION
  Report Type: Spontaneous
  Country: GB (occurrence: GB)
  Receive Date: 20250509
  Receipt Date: 20250509
  Transmission Date: 20250717
  Serious: Yes (Other)
  Sender: CELLTRION
  Company Number: GB-CELLTRION INC.-2025GB014036

PATIENT

DRUGS (2)
  1. YUFLYMA [Suspect]
     Active Substance: ADALIMUMAB-AATY
     Indication: Crohn^s disease
     Dosage: UNK UNK, 1/WEEK
     Route: 058
  2. YUFLYMA [Suspect]
     Active Substance: ADALIMUMAB-AATY
     Dosage: UNK UNK, Q2WEEKS
     Route: 058

REACTIONS (5)
  - Haematochezia [Unknown]
  - Quality of life decreased [Unknown]
  - Somnolence [Unknown]
  - Fatigue [Unknown]
  - Inappropriate schedule of product administration [Unknown]
